FAERS Safety Report 9204580 (Version 3)
Quarter: 2013Q4

REPORT INFORMATION
  Report Type: Report from Study
  Country: JP (occurrence: JP)
  Receive Date: 20130402
  Receipt Date: 20131004
  Transmission Date: 20140711
  Serious: Yes (Other)
  Sender: FDA-Public Use
  Company Number: JP-JNJFOC-20130400081

PATIENT
  Age: 41 Year
  Sex: Female
  Weight: 38 kg

DRUGS (22)
  1. SIMPONI [Suspect]
     Indication: RHEUMATOID ARTHRITIS
     Route: 058
     Dates: start: 20120808
  2. SIMPONI [Suspect]
     Indication: RHEUMATOID ARTHRITIS
     Route: 058
     Dates: start: 20120711
  3. SIMPONI [Suspect]
     Indication: RHEUMATOID ARTHRITIS
     Route: 058
     Dates: start: 20120613
  4. SIMPONI [Suspect]
     Indication: RHEUMATOID ARTHRITIS
     Route: 058
     Dates: start: 20120905
  5. SIMPONI [Suspect]
     Indication: RHEUMATOID ARTHRITIS
     Route: 058
     Dates: start: 20121003
  6. SIMPONI [Suspect]
     Indication: RHEUMATOID ARTHRITIS
     Route: 058
     Dates: start: 20121107
  7. LOXONIN [Suspect]
     Indication: RHEUMATOID ARTHRITIS
  8. PREDONINE [Concomitant]
     Indication: RHEUMATOID ARTHRITIS
     Route: 048
     Dates: end: 201210
  9. PREDONINE [Concomitant]
     Indication: RHEUMATOID ARTHRITIS
     Route: 048
     Dates: start: 201210
  10. METHOTREXATE [Concomitant]
     Indication: RHEUMATOID ARTHRITIS
     Route: 048
     Dates: start: 20120808
  11. METHOTREXATE [Concomitant]
     Indication: RHEUMATOID ARTHRITIS
     Route: 048
     Dates: end: 20120807
  12. CINAL [Concomitant]
     Route: 048
  13. TAKEPRON [Concomitant]
     Route: 048
  14. ACTONEL [Concomitant]
     Indication: PROPHYLAXIS
     Route: 048
  15. LASIX [Concomitant]
     Route: 048
  16. ONEALFA [Concomitant]
     Indication: PROPHYLAXIS
     Route: 048
  17. ALOSENN [Concomitant]
     Route: 048
  18. PASTARON [Concomitant]
     Route: 061
  19. MOHRUS TAPE [Concomitant]
     Indication: RHEUMATOID ARTHRITIS
     Route: 062
     Dates: start: 20060818
  20. EDIROL [Concomitant]
     Indication: PROPHYLAXIS
     Route: 048
  21. FOLIAMIN [Concomitant]
  22. FUNGIZONE [Concomitant]
     Route: 048

REACTIONS (9)
  - Clavicle fracture [Recovered/Resolved]
  - Fall [Recovered/Resolved]
  - Ephelides [Not Recovered/Not Resolved]
  - Pruritus [Recovered/Resolved]
  - Alopecia [Not Recovered/Not Resolved]
  - Rash [Not Recovered/Not Resolved]
  - Eye discharge [Recovered/Resolved]
  - Cheilitis [Recovered/Resolved]
  - Dry mouth [Recovered/Resolved]
